FAERS Safety Report 4987368-2 (Version None)
Quarter: 2006Q2

REPORT INFORMATION
  Report Type: 
  Country: None (occurrence: None)
  Receive Date: 20060424
  Receipt Date: 20060417
  Transmission Date: 20061013
  Serious: Yes (Hospitalization, Other)
  Sender: FDA-Public Use
  Company Number: 2006AL000995

PATIENT
  Sex: Female

DRUGS (4)
  1. PHENTERMINE HYDROCHLORIDE [Suspect]
     Indication: WEIGHT DECREASED
     Dosage: PO
     Route: 048
     Dates: start: 19970101
  2. RISPERDAL [Concomitant]
  3. ZOLOFT [Concomitant]
  4. TEMAZEPAM [Concomitant]

REACTIONS (5)
  - BLOOD PRESSURE INCREASED [None]
  - DELUSION [None]
  - LOSS OF CONSCIOUSNESS [None]
  - PALPITATIONS [None]
  - PSYCHOTIC DISORDER [None]
